FAERS Safety Report 9268916 (Version 2)
Quarter: 2013Q3

REPORT INFORMATION
  Report Type: Spontaneous
  Country: US (occurrence: US)
  Receive Date: 20130503
  Receipt Date: 20130816
  Transmission Date: 20140515
  Serious: Yes (Other)
  Sender: FDA-Public Use
  Company Number: US-AMGEN-USASP2013030321

PATIENT
  Age: 34 Year
  Sex: Female
  Weight: 58.96 kg

DRUGS (12)
  1. ENBREL [Suspect]
     Indication: RHEUMATOID ARTHRITIS
     Dosage: 50 MG, QWK
     Route: 065
     Dates: start: 20130124, end: 20130416
  2. ENBREL [Suspect]
     Indication: ANKYLOSING SPONDYLITIS
  3. ENBREL [Suspect]
     Indication: SPONDYLOARTHROPATHY
  4. CERTOLIZUMAB PEGOL [Concomitant]
     Dosage: UNK
  5. PNEUMOCOCCAL VACCINE [Concomitant]
     Dosage: PNEUMONIA VACCINE
     Dates: start: 20130402
  6. PREDNISONE [Concomitant]
     Indication: AUTOIMMUNE DISORDER
     Dosage: 10 MG, QD
     Dates: start: 201211
  7. CALCIUM + VIT D [Concomitant]
     Indication: SUPPLEMENTATION THERAPY
     Dosage: UNK UNK, BID, 600+400
     Route: 048
     Dates: start: 201211
  8. CIMZIA [Concomitant]
     Indication: RHEUMATOID ARTHRITIS
     Dosage: 200 MG, Q2WK
     Route: 058
     Dates: start: 20130416
  9. CIMZIA [Concomitant]
     Indication: SPONDYLOARTHROPATHY
  10. TRAMADOL [Concomitant]
     Indication: PAIN
     Dosage: 25.50 MG, AS NECESSARY, TRAMADOL ER, 200 MG
     Route: 048
     Dates: end: 2009
  11. TRAMADOL [Concomitant]
     Dosage: 200 MG, QD
     Route: 048
     Dates: start: 2011
  12. MULTIVITAMINS, PLAIN [Concomitant]
     Indication: SUPPLEMENTATION THERAPY
     Dosage: UNK UNK, QD

REACTIONS (6)
  - Abortion spontaneous [Recovered/Resolved]
  - Dyspnoea [Not Recovered/Not Resolved]
  - Fatigue [Not Recovered/Not Resolved]
  - Arthralgia [Not Recovered/Not Resolved]
  - Musculoskeletal chest pain [Not Recovered/Not Resolved]
  - Spinal pain [Not Recovered/Not Resolved]
